FAERS Safety Report 9060179 (Version 1)
Quarter: 2013Q1

REPORT INFORMATION
  Report Type: Spontaneous
  Country: GB (occurrence: GB)
  Receive Date: 20130212
  Receipt Date: 20130212
  Transmission Date: 20140127
  Serious: Yes (Other)
  Sender: FDA-Public Use
  Company Number: GB-SANOFI-AVENTIS-2013SA008367

PATIENT
  Age: 77 Year
  Sex: Male

DRUGS (4)
  1. ALFUZOSIN HYDROCHLORIDE [Suspect]
     Indication: PRODUCT USED FOR UNKNOWN INDICATION
     Route: 065
  2. OFLOXACIN [Suspect]
     Indication: CELLULITIS
     Route: 065
  3. WARFARIN [Suspect]
     Indication: PRODUCT USED FOR UNKNOWN INDICATION
     Route: 065
  4. CO-PROXAMOL [Suspect]
     Indication: PAIN
     Route: 065

REACTIONS (7)
  - Petechiae [Recovering/Resolving]
  - Erythema [Recovering/Resolving]
  - Achilles tendon discomfort [Not Recovered/Not Resolved]
  - Excoriation [Not Recovered/Not Resolved]
  - Tendonitis [Not Recovered/Not Resolved]
  - Dysgeusia [Not Recovered/Not Resolved]
  - Dyspnoea [Not Recovered/Not Resolved]
